FAERS Safety Report 6171071-X (Version None)
Quarter: 2009Q2

REPORT INFORMATION
  Report Type: 
  Country: None (occurrence: None)
  Receive Date: 20090429
  Receipt Date: 20090416
  Transmission Date: 20091009
  Serious: Yes (Other)
  Sender: FDA-Public Use
  Company Number: PHHY2009NL14280

PATIENT
  Sex: Female

DRUGS (6)
  1. EXELON [Suspect]
     Dosage: 1.5MG 2DD1.5MG
     Dates: start: 20081022, end: 20090303
  2. EXELON [Suspect]
     Dosage: 1DD1.5MG
     Dates: start: 20090304, end: 20090313
  3. EBIXA [Suspect]
     Dosage: 10MG, 2DD5MG
     Dates: start: 20081217, end: 20090304
  4. THIAMINE HYDROCHLORIDE [Concomitant]
     Dosage: 100 MG, 1DD100MG
     Dates: start: 20081017, end: 20090313
  5. THIAMINE HYDROCHLORIDE [Concomitant]
     Dosage: 25MG, 1DD25MG
     Dates: start: 20090323
  6. HYDROCHLOROTHIAZIDE [Concomitant]
     Dosage: 12.5MG, 1DD12.5MG
     Dates: start: 20071121

REACTIONS (2)
  - ARRHYTHMIA [None]
  - PANCREATITIS [None]
